FAERS Safety Report 11063785 (Version 1)
Quarter: 2015Q2

REPORT INFORMATION
  Report Type: Spontaneous
  Country: US (occurrence: US)
  Receive Date: 20150424
  Receipt Date: 20150424
  Transmission Date: 20150821
  Serious: No
  Sender: FDA-Public Use
  Company Number: US-TARO-2014TAR00113

PATIENT
  Age: 81 Year
  Sex: Female
  Weight: 49.89 kg

DRUGS (6)
  1. ONE-A-DAY VITAMIN [Concomitant]
  2. ENTOCORT [Concomitant]
     Active Substance: BUDESONIDE
  3. FLUOROURACIL TOPICAL CREAM USP 5% [Suspect]
     Active Substance: FLUOROURACIL
     Indication: ACTINIC KERATOSIS
     Dosage: 5 %, 2X/DAY
     Route: 061
     Dates: start: 20140626, end: 20140628
  4. AMLODIPINE [Concomitant]
     Active Substance: AMLODIPINE BESYLATE
  5. ONE-A-DAY ASPIRIN [Concomitant]
  6. APRISO [Concomitant]
     Active Substance: MESALAMINE

REACTIONS (2)
  - Anxiety [Recovered/Resolved]
  - Chest discomfort [Recovered/Resolved]

NARRATIVE: CASE EVENT DATE: 20140627
